FAERS Safety Report 25116698 (Version 1)
Quarter: 2025Q1

REPORT INFORMATION
  Report Type: Spontaneous
  Country: US (occurrence: US)
  Receive Date: 20250325
  Receipt Date: 20250325
  Transmission Date: 20250408
  Serious: No
  Sender: REVANCE THERAPEUTICS
  Company Number: US-REVANCE THERAPEUTICS INC.-US-REV-2024-000746

PATIENT

DRUGS (1)
  1. DAXIBOTULINUMTOXIN A-LANM [Suspect]
     Active Substance: DAXIBOTULINUMTOXIN A-LANM
     Indication: Skin wrinkling
     Route: 065
     Dates: start: 20241008

REACTIONS (9)
  - Temporomandibular pain and dysfunction syndrome [Not Recovered/Not Resolved]
  - Giant cell arteritis [Unknown]
  - Bruxism [Unknown]
  - Blood pressure increased [Unknown]
  - Headache [Recovered/Resolved]
  - Dysphagia [Not Recovered/Not Resolved]
  - Dry eye [Unknown]
  - Underdose [Unknown]
  - Off label use [Unknown]

NARRATIVE: CASE EVENT DATE: 20240101
